FAERS Safety Report 12530926 (Version 3)
Quarter: 2017Q3

REPORT INFORMATION
  Report Type: Report from Study
  Country: JP (occurrence: JP)
  Receive Date: 20160706
  Receipt Date: 20170830
  Transmission Date: 20171127
  Serious: Yes (Life-Threatening, Hospitalization, Other)
  Sender: FDA-Public Use
  Company Number: JP-SA-2016SA123525

PATIENT
  Age: 55 Year
  Sex: Male
  Weight: 64.5 kg

DRUGS (25)
  1. TACROLIMUS. [Suspect]
     Active Substance: TACROLIMUS
     Indication: IMMUNOSUPPRESSANT DRUG THERAPY
     Dosage: 4 - 6 MG/DAY
     Route: 048
     Dates: start: 20151222
  2. ROZEREM [Concomitant]
     Active Substance: RAMELTEON
     Dosage: 8MG
     Route: 065
  3. ACELIO [Concomitant]
     Active Substance: ACETAMINOPHEN
     Indication: PREMEDICATION
     Route: 065
     Dates: start: 20151227, end: 20151228
  4. MAINTATE [Concomitant]
     Active Substance: BISOPROLOL FUMARATE
     Indication: PROPHYLAXIS
     Route: 048
     Dates: start: 20151228
  5. TRAZODONE HYDROCHLORIDE. [Concomitant]
     Active Substance: TRAZODONE HYDROCHLORIDE
     Indication: PROPHYLAXIS
     Dosage: 25MG
     Route: 065
  6. DENOSINE [Suspect]
     Active Substance: GANCICLOVIR
     Indication: CYTOMEGALOVIRUS VIRAEMIA
     Dosage: 120 - 300?MG/DAY
     Route: 065
     Dates: start: 20151218, end: 20160424
  7. RISPERDAL [Concomitant]
     Active Substance: RISPERIDONE
     Indication: INSOMNIA
     Dosage: WHEN HAVING INSOMNIA
     Route: 048
     Dates: start: 20151230, end: 20160113
  8. POVIDONE-IODINE. [Concomitant]
     Active Substance: POVIDONE-IODINE
     Dosage: GARGLE 6% DILUTED GARGLE SOLUTION 500 ML?1 BOTTLE
     Route: 065
     Dates: start: 20151213
  9. CELLCEPT [Suspect]
     Active Substance: MYCOPHENOLATE MOFETIL\MYCOPHENOLATE MOFETIL HYDROCHLORIDE
     Indication: IMMUNOSUPPRESSANT DRUG THERAPY
     Dosage: 250 - 1500?MG/DAY
     Route: 048
     Dates: start: 20151213
  10. TANDETRON [Concomitant]
     Active Substance: ALPROSTADIL ALFADEX
     Indication: PROPHYLAXIS
     Route: 065
     Dates: start: 20151213, end: 20160121
  11. TEICOPLANIN [Concomitant]
     Active Substance: TEICOPLANIN
     Dosage: 100 - 800 MG/DAY
     Route: 065
     Dates: start: 20151218, end: 20151231
  12. OMEPRAZOLE. [Concomitant]
     Active Substance: OMEPRAZOLE
     Indication: PROPHYLAXIS
     Route: 065
     Dates: start: 20151229, end: 20151231
  13. TRAZODONE HYDROCHLORIDE. [Concomitant]
     Active Substance: TRAZODONE HYDROCHLORIDE
     Indication: PROPHYLAXIS
     Dosage: 50MG
     Route: 065
  14. POLARAMINE [Concomitant]
     Active Substance: DEXCHLORPHENIRAMINE MALEATE
     Indication: PREMEDICATION
     Route: 065
     Dates: start: 20151227, end: 20160102
  15. FIBROGAMMIN P [Concomitant]
     Active Substance: FACTOR XIII CONCENTRATE (HUMAN)
     Indication: PROPHYLAXIS
     Dosage: DOSE: 6 V/DAY
     Route: 065
     Dates: start: 20151225, end: 20151227
  16. ATORVASTATIN [Concomitant]
     Active Substance: ATORVASTATIN
     Indication: PROPHYLAXIS
     Dosage: 20MG
     Route: 065
  17. THYMOGLOBULINE [Suspect]
     Active Substance: LAPINE T-LYMPHOCYTE IMMUNE GLOBULIN
     Indication: LUNG TRANSPLANT REJECTION
     Route: 042
     Dates: start: 20151227, end: 20160102
  18. HEPARIN [Concomitant]
     Active Substance: HEPARIN SODIUM
     Indication: PROPHYLAXIS
     Dosage: DOSE:1000 UNIT(S)
     Route: 065
     Dates: start: 20151225, end: 20160103
  19. TOBRACIN [Concomitant]
     Active Substance: TOBRAMYCIN
     Route: 065
     Dates: start: 20151222, end: 20160111
  20. PREDONINE [Concomitant]
     Active Substance: PREDNISOLONE
     Indication: IMMUNOSUPPRESSANT DRUG THERAPY
     Route: 065
     Dates: start: 20160217
  21. TEPRENONE [Concomitant]
     Active Substance: TEPRENONE
     Indication: PROPHYLAXIS
     Route: 048
     Dates: start: 20151228
  22. FUROSEMIDE. [Concomitant]
     Active Substance: FUROSEMIDE
     Indication: PROPHYLAXIS
     Route: 048
     Dates: start: 20151213
  23. PREDONINE [Concomitant]
     Active Substance: PREDNISOLONE
     Indication: IMMUNOSUPPRESSANT DRUG THERAPY
     Dosage: 40 - 60 MG/DAY
     Route: 065
     Dates: start: 20151213, end: 20151231
  24. VENOGLOBULIN IH [Concomitant]
     Active Substance: HUMAN IMMUNOGLOBULIN G
     Route: 065
     Dates: start: 20151223, end: 20160103
  25. JANUVIA [Concomitant]
     Active Substance: SITAGLIPTIN PHOSPHATE
     Dosage: 50MG
     Route: 065

REACTIONS (5)
  - Pyrexia [Recovered/Resolved]
  - Hypoxia [Recovered/Resolved]
  - Cytomegalovirus viraemia [Recovered/Resolved]
  - White blood cell count decreased [Recovered/Resolved]
  - Nausea [Recovered/Resolved]

NARRATIVE: CASE EVENT DATE: 20151227
